FAERS Safety Report 16332207 (Version 5)
Quarter: 2022Q4

REPORT INFORMATION
  Report Type: Spontaneous
  Country: US (occurrence: US)
  Receive Date: 20190520
  Receipt Date: 20221207
  Transmission Date: 20230113
  Serious: Yes (Other)
  Sender: FDA-Public Use
  Company Number: US-PFIZER INC-2019212977

PATIENT
  Age: 70 Year
  Sex: Female

DRUGS (1)
  1. XELJANZ XR [Suspect]
     Active Substance: TOFACITINIB CITRATE
     Indication: Arthritis
     Dosage: 11 MG, DAILY (11 MG 1 TABLET DAILY)
     Dates: start: 201905

REACTIONS (5)
  - Drug dependence [Unknown]
  - Malaise [Unknown]
  - Pain [Unknown]
  - Headache [Unknown]
  - Mobility decreased [Unknown]
